FAERS Safety Report 5208225-2 (Version None)
Quarter: 2006Q4

REPORT INFORMATION
  Report Type: 
  Country: None (occurrence: None)
  Receive Date: 20061027
  Receipt Date: 20060711
  Transmission Date: 20070319
  Serious: Yes (Other)
  Sender: FDA-Public Use
  Company Number: HQWYE892913JUL06

PATIENT
  Sex: Female

DRUGS (1)
  1. PREMARIN [Suspect]
     Dosage: .625 MG, 156 MOS. (13 YEARS)
     Dates: start: 19800101, end: 19930701

REACTIONS (1)
  - BREAST CANCER [None]
